FAERS Safety Report 9558809 (Version 2)
Quarter: 2013Q4

REPORT INFORMATION
  Report Type: Report from Study
  Country: BR (occurrence: BR)
  Receive Date: 20130926
  Receipt Date: 20131129
  Transmission Date: 20140711
  Serious: Yes (Other)
  Sender: FDA-Public Use
  Company Number: BR-ROCHE-1278716

PATIENT
  Sex: Female
  Weight: 70 kg

DRUGS (4)
  1. XOLAIR [Suspect]
     Indication: ASTHMA
     Dosage: 2 AMPOULES MONTHLY; LAST APPLICATION OF XOLAIR WAS ON 10 SEP(YEAR NOT SPECIFIED).
     Route: 058
     Dates: start: 20080715
  2. BUDESONIDE [Concomitant]
  3. FORASEQ [Concomitant]
     Dosage: 12/400 MCG
     Route: 065
  4. DIPHTHERIA VACCINE/PERTUSSIS VACCINE/TETANUS TOXOID [Concomitant]

REACTIONS (11)
  - Nasal polyps [Recovered/Resolved]
  - Sinusitis [Recovered/Resolved]
  - Nasal septum deviation [Recovered/Resolved]
  - Bronchiectasis [Recovered/Resolved]
  - Bacterial infection [Not Recovered/Not Resolved]
  - Dyspepsia [Not Recovered/Not Resolved]
  - Weight increased [Not Recovered/Not Resolved]
  - Secretion discharge [Recovered/Resolved]
  - Headache [Recovering/Resolving]
  - Cataract [Unknown]
  - Abdominal pain upper [Recovered/Resolved]
